FAERS Safety Report 22600925 (Version 1)
Quarter: 2023Q2

REPORT INFORMATION
  Report Type: Spontaneous
  Country: US (occurrence: US)
  Receive Date: 20230614
  Receipt Date: 20230614
  Transmission Date: 20230721
  Serious: No
  Sender: FDA-Public Use
  Company Number: US-PFIZER INC-PV202300104541

PATIENT
  Age: 63 Year
  Sex: Male

DRUGS (1)
  1. NURTEC ODT [Suspect]
     Active Substance: RIMEGEPANT SULFATE
     Dosage: 75 MG, ALTERNATE DAY (TAKE ONE TABLET BY MOUTH EVERY OTHER DAY. NO MORE THAN ONE DOSE IN 24 HRS)
     Route: 048

REACTIONS (1)
  - Migraine [Unknown]
